FAERS Safety Report 18821769 (Version 1)
Quarter: 2021Q1

REPORT INFORMATION
  Report Type: Spontaneous
  Country: US (occurrence: US)
  Receive Date: 20210201
  Receipt Date: 20210201
  Transmission Date: 20210419
  Serious: Yes (Hospitalization)
  Sender: FDA-Public Use
  Company Number: None

PATIENT
  Age: 59 Year
  Sex: Male

DRUGS (1)
  1. SUGAMMADEX (SUGAMMADEX 100MG/ML INJ, 2ML) [Suspect]
     Active Substance: SUGAMMADEX
     Indication: SURGERY
     Dates: start: 20201018, end: 20201018

REACTIONS (5)
  - Respiratory failure [None]
  - Bronchospasm [None]
  - Anaphylactic reaction [None]
  - Cough [None]
  - Respiratory depression [None]

NARRATIVE: CASE EVENT DATE: 20201018
